FAERS Safety Report 9347106 (Version 1)
Quarter: 2013Q2

REPORT INFORMATION
  Report Type: Spontaneous
  Country: JP (occurrence: JP)
  Receive Date: 20130613
  Receipt Date: 20130613
  Transmission Date: 20140414
  Serious: Yes (Other)
  Sender: FDA-Public Use
  Company Number: JP-GLAXOSMITHKLINE-B0898361A

PATIENT
  Age: 77 Year
  Sex: Male

DRUGS (1)
  1. PAXIL CR [Suspect]
     Indication: PRODUCT USED FOR UNKNOWN INDICATION
     Dosage: 12.5MG PER DAY
     Route: 048
     Dates: start: 20120731, end: 201211

REACTIONS (3)
  - Neurogenic bladder [Not Recovered/Not Resolved]
  - Decreased appetite [Unknown]
  - Dysuria [Unknown]
